FAERS Safety Report 8403392-1 (Version None)
Quarter: 2012Q2

REPORT INFORMATION
  Report Type: 
  Country: None (occurrence: None)
  Receive Date: 20120323
  Receipt Date: 20111117
  Transmission Date: 20120825
  Serious: Yes (Hospitalization)
  Sender: FDA-Public Use
  Company Number: 163-21880-11043797

PATIENT
  Age: 77 Year
  Sex: Female

DRUGS (3)
  1. REVLIMID [Suspect]
     Indication: MULTIPLE MYELOMA
     Dosage: 25 MG, DAILY FOR 21 DAYS, 7 DAYS OFF, PO 10 MG, DAILY FOR 21 DAYS, 7 DAYS OFF, PO 10 MG, 2 X WEEK, P
     Route: 048
     Dates: start: 20110623, end: 20110728
  2. REVLIMID [Suspect]
     Indication: MULTIPLE MYELOMA
     Dosage: 25 MG, DAILY FOR 21 DAYS, 7 DAYS OFF, PO 10 MG, DAILY FOR 21 DAYS, 7 DAYS OFF, PO 10 MG, 2 X WEEK, P
     Route: 048
     Dates: start: 20110426
  3. REVLIMID [Suspect]
     Indication: MULTIPLE MYELOMA
     Dosage: 25 MG, DAILY FOR 21 DAYS, 7 DAYS OFF, PO 10 MG, DAILY FOR 21 DAYS, 7 DAYS OFF, PO 10 MG, 2 X WEEK, P
     Route: 048
     Dates: start: 20110322

REACTIONS (4)
  - SINUSITIS [None]
  - NASOPHARYNGITIS [None]
  - PYREXIA [None]
  - FEBRILE NEUTROPENIA [None]
